FAERS Safety Report 5344275-3 (Version None)
Quarter: 2007Q2

REPORT INFORMATION
  Report Type: 
  Country: None (occurrence: None)
  Receive Date: 20070604
  Receipt Date: 20070523
  Transmission Date: 20071010
  Serious: Yes (Other)
  Sender: FDA-Public Use
  Company Number: US-ELI_LILLY_AND_COMPANY-US200705006135

PATIENT
  Age: 49 Year
  Sex: Male
  Weight: 86.621 kg

DRUGS (2)
  1. DULOXETINE HYDROCHLORIDE [Suspect]
     Indication: SOCIAL PHOBIA
     Dosage: 60 MG, UNK
     Route: 048
     Dates: start: 20070416, end: 20070523
  2. *PLACEBO [Suspect]
     Indication: SOCIAL PHOBIA
     Route: 048
     Dates: start: 20070516, end: 20070523

REACTIONS (2)
  - BLOOD CREATINE PHOSPHOKINASE INCREASED [None]
  - LIVER FUNCTION TEST ABNORMAL [None]
